FAERS Safety Report 21762985 (Version 1)
Quarter: 2022Q4

REPORT INFORMATION
  Report Type: Report from Study
  Country: US (occurrence: None)
  Receive Date: 20221221
  Receipt Date: 20221221
  Transmission Date: 20230112
  Serious: Yes (Hospitalization, Other)
  Sender: FDA-Public Use
  Company Number: US-Merck Healthcare KGaA-9373211

PATIENT
  Sex: Female

DRUGS (1)
  1. MAVENCLAD [Suspect]
     Active Substance: CLADRIBINE
     Indication: Multiple sclerosis
     Dosage: THERAPY
     Route: 048
     Dates: start: 20201202

REACTIONS (5)
  - Nephrolithiasis [Unknown]
  - Muscle spasticity [Unknown]
  - Asthenia [Unknown]
  - Post procedural complication [Recovering/Resolving]
  - Complication associated with device [Recovering/Resolving]
